FAERS Safety Report 17391197 (Version 3)
Quarter: 2024Q4

REPORT INFORMATION
  Report Type: Spontaneous
  Country: IT (occurrence: IT)
  Receive Date: 20200207
  Receipt Date: 20241227
  Transmission Date: 20250115
  Serious: Yes (Death, Life-Threatening, Hospitalization, Other)
  Sender: AUROBINDO
  Company Number: IT-STADA-194108

PATIENT
  Age: 74 Year
  Sex: Male

DRUGS (6)
  1. AZITHROMYCIN [Suspect]
     Active Substance: AZITHROMYCIN
     Indication: Antibiotic therapy
     Dosage: UNK
     Route: 065
  2. CEFEPIME [Suspect]
     Active Substance: CEFEPIME HYDROCHLORIDE
     Indication: Antibiotic therapy
     Dosage: UNK
     Route: 065
  3. VANCOMYCIN [Suspect]
     Active Substance: VANCOMYCIN
     Indication: Antibiotic therapy
     Dosage: UNK
     Route: 065
  4. OFLOXACIN [Suspect]
     Active Substance: OFLOXACIN
     Indication: Pseudomonas infection
     Dosage: 400 MILLIGRAM, TWO TIMES A DAY
     Route: 042
  5. CEFTAZIDIME [Suspect]
     Active Substance: CEFTAZIDIME
     Indication: Pseudomonas infection
     Dosage: 2 GRAM, 3 TIMES A DAY
     Route: 042
  6. CLINDAMYCIN [Suspect]
     Active Substance: CLINDAMYCIN
     Indication: Pseudomonas infection
     Dosage: UNK
     Route: 065

REACTIONS (8)
  - Cardiac failure [Fatal]
  - Pneumonia necrotising [Recovered/Resolved]
  - Subcutaneous emphysema [Recovered/Resolved]
  - Pleural fistula [Recovered/Resolved]
  - Pseudomonas infection [Recovered/Resolved]
  - Pneumothorax [Recovered/Resolved]
  - Empyema [Recovered/Resolved]
  - Treatment failure [Unknown]
